FAERS Safety Report 19262192 (Version 2)
Quarter: 2021Q3

REPORT INFORMATION
  Report Type: Spontaneous
  Country: US (occurrence: US)
  Receive Date: 20210516
  Receipt Date: 20210721
  Transmission Date: 20211014
  Serious: Yes (Life-Threatening, Hospitalization)
  Sender: FDA-Public Use
  Company Number: US-TEVA-2021-US-1910211

PATIENT
  Age: 70 Year
  Sex: Male

DRUGS (16)
  1. NOREPINEPHRINE. [Suspect]
     Active Substance: NOREPINEPHRINE
     Indication: SINUS BRADYCARDIA
     Route: 065
  2. LEVOTHYROXINE. [Concomitant]
     Active Substance: LEVOTHYROXINE
     Indication: HYPOTHYROIDISM
     Route: 048
  3. HYDROCORTISONE. [Suspect]
     Active Substance: HYDROCORTISONE
     Indication: MYXOEDEMA COMA
     Route: 042
  4. EPINEPHRINE. [Suspect]
     Active Substance: EPINEPHRINE
     Indication: SINUS BRADYCARDIA
     Route: 042
  5. EPINEPHRINE. [Suspect]
     Active Substance: EPINEPHRINE
     Indication: CARDIOGENIC SHOCK
     Route: 065
  6. MAGNESIUM [Suspect]
     Active Substance: MAGNESIUM
     Indication: CARDIAC ARREST
     Route: 042
  7. LEVOTHYROXINE (T4) [Suspect]
     Active Substance: LEVOTHYROXINE
     Indication: MYXOEDEMA COMA
     Route: 042
  8. PHENYLEPHRINE [Suspect]
     Active Substance: PHENYLEPHRINE HYDROCHLORIDE
     Indication: CARDIOGENIC SHOCK
     Route: 065
  9. DOPAMINE [Concomitant]
     Active Substance: DOPAMINE HYDROCHLORIDE
     Indication: SINUS BRADYCARDIA
     Dosage: DOPAMINE DRIP
     Route: 065
  10. AXITINIB [Suspect]
     Active Substance: AXITINIB
     Indication: METASTATIC RENAL CELL CARCINOMA
     Dosage: 14 MILLIGRAM DAILY;
     Route: 048
  11. PEMBROLIZUMAB. [Suspect]
     Active Substance: PEMBROLIZUMAB
     Indication: METASTATIC RENAL CELL CARCINOMA
     Route: 042
  12. ATROPINE. [Suspect]
     Active Substance: ATROPINE
     Indication: SINUS BRADYCARDIA
     Dosage: 1 DOSE
     Route: 042
  13. NOREPINEPHRINE. [Suspect]
     Active Substance: NOREPINEPHRINE
     Indication: CARDIOGENIC SHOCK
     Dosage: INITIAL DOSE NOT STATED
     Route: 065
  14. LIOTHYRONINE (T3) [Suspect]
     Active Substance: LIOTHYRONINE
     Indication: MYXOEDEMA COMA
     Route: 042
  15. DOPAMINE [Concomitant]
     Active Substance: DOPAMINE HYDROCHLORIDE
     Indication: CARDIOGENIC SHOCK
     Route: 065
  16. CARVEDILOL. [Concomitant]
     Active Substance: CARVEDILOL
     Indication: ATRIAL FIBRILLATION
     Dosage: 25 MILLIGRAM DAILY;
     Route: 048

REACTIONS (9)
  - Acute myocardial infarction [Unknown]
  - Secondary adrenocortical insufficiency [Unknown]
  - Treatment failure [Unknown]
  - Sinus bradycardia [Unknown]
  - Cardiac arrest [Unknown]
  - Torsade de pointes [Unknown]
  - Myxoedema coma [Unknown]
  - Cardiogenic shock [Unknown]
  - Pericardial effusion [Unknown]
